FAERS Safety Report 9634741 (Version 2)
Quarter: 2013Q4

REPORT INFORMATION
  Report Type: Spontaneous
  Country: US (occurrence: US)
  Receive Date: 20131021
  Receipt Date: 20131021
  Transmission Date: 20140711
  Serious: No
  Sender: FDA-Public Use
  Company Number: US-PURDUE-USA-2013-0101478

PATIENT
  Age: 80 Year
  Sex: Male

DRUGS (8)
  1. BUTRANS [Suspect]
     Indication: ARTHRITIS
     Dosage: 10 MCG/HR, 1/WEEK
     Route: 062
     Dates: start: 20130420, end: 20130420
  2. HYDRALAZINE                        /00007602/ [Concomitant]
     Indication: BLOOD PRESSURE
     Dosage: 50 MG, TID
     Route: 048
  3. METOPROLOL                         /00376902/ [Concomitant]
     Indication: BLOOD PRESSURE
     Dosage: 50 MG, DAILY
     Route: 048
     Dates: start: 201302
  4. SIMVASTATIN [Concomitant]
     Indication: BLOOD CHOLESTEROL INCREASED
     Dosage: 20 MG, DAILY
     Route: 048
     Dates: start: 201211
  5. FINASTERIDE [Concomitant]
     Indication: PROSTATOMEGALY
     Dosage: 1 TABLET, DAILY
     Route: 048
     Dates: start: 2012
  6. TAMSULOSIN                         /01280302/ [Concomitant]
     Indication: PROSTATOMEGALY
     Dosage: 4 MG, DAILY
     Route: 048
     Dates: start: 2012
  7. ASPIRIN [Concomitant]
     Indication: PRODUCT USED FOR UNKNOWN INDICATION
     Dosage: 81 MG, DAILY
     Route: 048
  8. AMITRIPTYLINE                      /00002202/ [Concomitant]
     Indication: DEPRESSION
     Dosage: 50 MG, DAILY
     Route: 048

REACTIONS (3)
  - Chest pain [Recovered/Resolved]
  - Local swelling [Recovered/Resolved]
  - Dyspnoea [Recovered/Resolved]
